FAERS Safety Report 7288129-4 (Version None)
Quarter: 2011Q1

REPORT INFORMATION
  Report Type: 
  Country: None (occurrence: None)
  Receive Date: 20110211
  Receipt Date: 20110203
  Transmission Date: 20110831
  Serious: Yes (Other)
  Sender: FDA-Public Use
  Company Number: US-JNJFOC-20110103968

PATIENT
  Sex: Male
  Weight: 106.14 kg

DRUGS (2)
  1. PREDNISONE [Suspect]
     Indication: CHRONIC OBSTRUCTIVE PULMONARY DISEASE
     Route: 048
  2. LEVAQUIN [Suspect]
     Indication: STAPHYLOCOCCAL INFECTION
     Route: 042

REACTIONS (12)
  - EYE DISORDER [None]
  - MIDDLE INSOMNIA [None]
  - ARTHRALGIA [None]
  - RASH [None]
  - VOMITING [None]
  - TENDON DISORDER [None]
  - ASTHENIA [None]
  - CERVICAL MYELOPATHY [None]
  - BACK DISORDER [None]
  - ARTHROPATHY [None]
  - DIZZINESS [None]
  - THROAT TIGHTNESS [None]
